FAERS Safety Report 9079764 (Version 1)
Quarter: 2013Q1

REPORT INFORMATION
  Report Type: Report from Study
  Country: US (occurrence: US)
  Receive Date: 20130130
  Receipt Date: 20130130
  Transmission Date: 20140127
  Serious: No
  Sender: FDA-Public Use
  Company Number: US-ABBOTT-12P-163-0946332-00

PATIENT
  Age: 46 Year
  Sex: Female

DRUGS (6)
  1. HUMIRA 40 MG/0.8 ML PEN [Suspect]
     Indication: ANKYLOSING SPONDYLITIS
     Dates: start: 20120509
  2. ASACOL [Concomitant]
     Indication: CROHN^S DISEASE
     Dosage: 800MG SIX TABLETS BY MOUTH WEEKLY
  3. SINGULAR [Concomitant]
     Indication: HYPERSENSITIVITY
     Dosage: 10MG BY MOUTH DAILY
  4. SYNTHROID [Concomitant]
     Indication: AUTOIMMUNE THYROIDITIS
     Dosage: 0.112MG BY MOUTH DAILY
  5. PREDNISONE [Concomitant]
     Indication: ANKYLOSING SPONDYLITIS
     Dosage: 5MG DAILY
  6. PRILOSEC [Concomitant]
     Indication: GASTROOESOPHAGEAL REFLUX DISEASE
     Dosage: BY MOUTH

REACTIONS (4)
  - Drug ineffective [Not Recovered/Not Resolved]
  - Increased tendency to bruise [Unknown]
  - Insomnia [Unknown]
  - Fatigue [Unknown]
